FAERS Safety Report 4943378-2 (Version None)
Quarter: 2006Q1

REPORT INFORMATION
  Report Type: 
  Country: None (occurrence: None)
  Receive Date: 20060309
  Receipt Date: 20060222
  Transmission Date: 20060701
  Serious: Yes (Other)
  Sender: FDA-Public Use
  Company Number: 2006-BP-02254RO

PATIENT
  Age: 32 Year
  Sex: Female
  Weight: 60 kg

DRUGS (21)
  1. METOCLOPRAMIDE [Suspect]
  2. LIDOCAINE [Suspect]
     Indication: ANAESTHESIA
     Dosage: IV
     Route: 042
  3. DAPSONE [Suspect]
     Indication: PNEUMOCYSTIS JIROVECI PNEUMONIA
  4. DAPSONE [Suspect]
     Indication: PROPHYLAXIS
  5. CYCLOSPORINE [Concomitant]
  6. PREDNISONE TAB [Concomitant]
  7. ASPIRIN [Concomitant]
  8. ONDANSETRON [Concomitant]
  9. PAROXETINE HCL [Concomitant]
  10. NORTRIPTYLINE HCL [Concomitant]
  11. NORTRIPTYLINE (NORTRIPTYLINE) [Concomitant]
  12. GABAPENTIN [Concomitant]
  13. SIROLIMUS (SIROLIMUS) [Concomitant]
  14. CLOTRIMAZOLE [Concomitant]
  15. LANSOPRAZOLE [Concomitant]
  16. ALENDRONATE (ALENDRONATE SODIUM) [Concomitant]
  17. CLINDAMYCIN [Concomitant]
  18. MIDAZOLAM HCL [Concomitant]
  19. FENTANYL [Concomitant]
  20. PROPOFOL [Concomitant]
  21. CISATRACURIUM (CISATRACURIUM) [Concomitant]

REACTIONS (4)
  - BLOOD PH INCREASED [None]
  - CYANOSIS [None]
  - METHAEMOGLOBINAEMIA [None]
  - OXYGEN SATURATION DECREASED [None]
